FAERS Safety Report 6550794-4 (Version None)
Quarter: 2010Q1

REPORT INFORMATION
  Report Type: 
  Country: None (occurrence: None)
  Receive Date: 20100125
  Receipt Date: 20100113
  Transmission Date: 20100710
  Serious: Yes (Hospitalization)
  Sender: FDA-Public Use
  Company Number: US-WATSON-2010-00353

PATIENT
  Sex: Male

DRUGS (1)
  1. FENTANYL-100 [Suspect]
     Indication: BONE PAIN
     Dosage: 1 PATCH, Q 3 DAYS
     Route: 062
     Dates: start: 20091212

REACTIONS (7)
  - APPLICATION SITE ABSCESS [None]
  - APPLICATION SITE BLEEDING [None]
  - APPLICATION SITE BURN [None]
  - APPLICATION SITE CELLULITIS [None]
  - APPLICATION SITE SCAR [None]
  - APPLICATION SITE VESICLES [None]
  - DEVICE LEAKAGE [None]
